FAERS Safety Report 19407038 (Version 1)
Quarter: 2021Q2

REPORT INFORMATION
  Report Type: Spontaneous
  Country: TW (occurrence: TW)
  Receive Date: 20210611
  Receipt Date: 20210611
  Transmission Date: 20210717
  Serious: Yes (Death, Other)
  Sender: FDA-Public Use
  Company Number: NVSC2020TW097336

PATIENT
  Sex: Female

DRUGS (6)
  1. CARBOPLATIN. [Suspect]
     Active Substance: CARBOPLATIN
     Indication: ADENOCARCINOMA
     Dosage: UNK
     Route: 065
  2. GEMCITABINE. [Suspect]
     Active Substance: GEMCITABINE
     Indication: ADENOCARCINOMA
     Dosage: UNK
     Route: 065
  3. AVASTIN [Concomitant]
     Active Substance: BEVACIZUMAB
     Indication: ADENOCARCINOMA
     Route: 065
  4. TAXOL [Suspect]
     Active Substance: PACLITAXEL
     Indication: ADENOCARCINOMA
     Route: 065
  5. TOPOTECAN [Suspect]
     Active Substance: TOPOTECAN HYDROCHLORIDE
     Indication: ADENOCARCINOMA
     Dosage: UNK
     Route: 065
  6. LIPODOX [Concomitant]
     Active Substance: DOXORUBICIN HYDROCHLORIDE
     Indication: ADENOCARCINOMA
     Route: 065

REACTIONS (5)
  - Death [Fatal]
  - Malignant neoplasm progression [Unknown]
  - Treatment failure [Unknown]
  - Mucinous cystadenocarcinoma ovary [Unknown]
  - Metastases to lung [Unknown]
